FAERS Safety Report 13449327 (Version 1)
Quarter: 2017Q2

REPORT INFORMATION
  Report Type: Spontaneous
  Country: US (occurrence: US)
  Receive Date: 20170417
  Receipt Date: 20170417
  Transmission Date: 20170830
  Serious: Yes (Other)
  Sender: FDA-Public Use
  Company Number: US-BAYER-2017-071925

PATIENT
  Age: 23 Year
  Sex: Female

DRUGS (1)
  1. MIRENA [Suspect]
     Active Substance: LEVONORGESTREL
     Dosage: 20 MCG/24HR, CONT
     Route: 015
     Dates: start: 20140318, end: 20150224

REACTIONS (4)
  - Vomiting [None]
  - Headache [None]
  - Intracranial pressure increased [None]
  - Visual impairment [None]

NARRATIVE: CASE EVENT DATE: 20150316
